FAERS Safety Report 11180580 (Version 1)
Quarter: 2015Q2

REPORT INFORMATION
  Report Type: Spontaneous
  Country: US (occurrence: US)
  Receive Date: 20150611
  Receipt Date: 20150611
  Transmission Date: 20150821
  Serious: No
  Sender: FDA-Public Use
  Company Number: US-PFIZER INC-2015192412

PATIENT
  Age: 34 Year
  Sex: Female
  Weight: 59 kg

DRUGS (1)
  1. CYTOMEL [Suspect]
     Active Substance: LIOTHYRONINE SODIUM
     Indication: THYROID DISORDER
     Dosage: 50 ?G, DAILY
     Dates: end: 20150515

REACTIONS (4)
  - Feeling abnormal [Not Recovered/Not Resolved]
  - Fatigue [Not Recovered/Not Resolved]
  - Weight increased [Not Recovered/Not Resolved]
  - Asthenia [Not Recovered/Not Resolved]

NARRATIVE: CASE EVENT DATE: 201505
